FAERS Safety Report 8165089-5 (Version None)
Quarter: 2012Q1

REPORT INFORMATION
  Report Type: 
  Country: None (occurrence: None)
  Receive Date: 20120227
  Receipt Date: 20120213
  Transmission Date: 20120608
  Serious: Yes (Other)
  Sender: FDA-Public Use
  Company Number: PL-AMGEN-POLSP2012005973

PATIENT
  Age: 4 Year
  Sex: Male
  Weight: 15 kg

DRUGS (3)
  1. METHOTREXATE [Concomitant]
     Dosage: UNK
     Route: 048
  2. ENBREL [Suspect]
     Indication: PRODUCT USED FOR UNKNOWN INDICATION
     Dosage: 6 MG, UNK
  3. METYPRED                           /00049601/ [Concomitant]
     Route: 048

REACTIONS (5)
  - PHARYNGITIS [None]
  - RED BLOOD CELL SEDIMENTATION RATE INCREASED [None]
  - TONSILLITIS [None]
  - URINARY TRACT INFECTION [None]
  - OVERDOSE [None]
